FAERS Safety Report 7499382-6 (Version None)
Quarter: 2011Q2

REPORT INFORMATION
  Report Type: 
  Country: None (occurrence: None)
  Receive Date: 20110524
  Receipt Date: 20091224
  Transmission Date: 20111010
  Serious: Yes (Hospitalization, Other)
  Sender: FDA-Public Use
  Company Number: AU-PFIZER INC-2009290743

PATIENT
  Sex: Female
  Weight: 68 kg

DRUGS (10)
  1. TRAMADOL HCL [Suspect]
     Indication: PAIN
     Dosage: 150 MG, 2X/DAY
     Route: 048
     Dates: start: 20090101
  2. LYRICA [Suspect]
     Indication: NEURALGIA
     Dosage: 300 MG, 2X/DAY
     Route: 048
     Dates: start: 20091001
  3. OXYCONTIN [Concomitant]
     Indication: PAIN
     Dosage: 20 MG, 1X/DAY NOCTE
     Route: 048
  4. PANADEINE FORTE [Concomitant]
     Dosage: 1 3X/DAY
  5. DIAZEPAM [Concomitant]
     Indication: PAIN
     Dosage: 5 MG, 3X/DAY
     Route: 048
  6. TEMAZEPAM [Concomitant]
     Indication: SLEEP DISORDER
     Dosage: 10 MG, NOCTE AS NEEDED
     Route: 048
  7. PARACETAMOL [Concomitant]
     Dosage: 500 MG, 3X/DAY
  8. LYRICA [Suspect]
     Dosage: 150 MG, 2X/DAY
     Route: 048
     Dates: start: 20090101
  9. ESCITALOPRAM [Suspect]
     Indication: POSTPARTUM DEPRESSION
     Dosage: 20 MG, 1X/DAY NOCTE
     Route: 048
     Dates: start: 20000101
  10. OXYCODONE HCL [Concomitant]
     Indication: PAIN
     Dosage: 10 MG, 2X/DAY AS NEEDED
     Route: 048

REACTIONS (18)
  - SYNCOPE [None]
  - FATIGUE [None]
  - BRADYPHRENIA [None]
  - PAIN [None]
  - PYREXIA [None]
  - ASTHENIA [None]
  - RESPIRATORY ARREST [None]
  - DYSPNOEA [None]
  - DRUG INEFFECTIVE [None]
  - DIZZINESS [None]
  - HYPERREFLEXIA [None]
  - NAUSEA [None]
  - CONVULSION [None]
  - TREMOR [None]
  - SOMNOLENCE [None]
  - CRYING [None]
  - GRAND MAL CONVULSION [None]
  - HEADACHE [None]
